FAERS Safety Report 14829565 (Version 2)
Quarter: 2018Q3

REPORT INFORMATION
  Report Type: Spontaneous
  Country: DE (occurrence: DE)
  Receive Date: 20180430
  Receipt Date: 20180727
  Transmission Date: 20181010
  Serious: Yes (Congenital Anomaly)
  Sender: FDA-Public Use
  Company Number: PHHY2018DE068251

PATIENT
  Sex: Male
  Weight: 3.64 kg

DRUGS (5)
  1. FLUTICASONE. [Concomitant]
     Active Substance: FLUTICASONE
     Indication: FOETAL EXPOSURE DURING PREGNANCY
     Dosage: ENTIRE PREGNANCY
     Route: 064
  2. IBUPROFEN. [Concomitant]
     Active Substance: IBUPROFEN
     Indication: FOETAL EXPOSURE DURING PREGNANCY
     Dosage: UNK
     Route: 064
  3. CELECOXIB. [Suspect]
     Active Substance: CELECOXIB
     Indication: FOETAL EXPOSURE DURING PREGNANCY
     Dosage: GW O TO 8+5
     Route: 064
  4. SALBUTAMOL [Concomitant]
     Active Substance: ALBUTEROL
     Indication: FOETAL EXPOSURE DURING PREGNANCY
     Dosage: UNK
     Route: 064
  5. TETRAZEPAM [Concomitant]
     Active Substance: TETRAZEPAM
     Indication: FOETAL EXPOSURE DURING PREGNANCY
     Dosage: UNK
     Route: 064

REACTIONS (3)
  - Ventricular septal defect [Unknown]
  - Transposition of the great vessels [Unknown]
  - Foetal exposure during pregnancy [Unknown]
